FAERS Safety Report 5559882-2 (Version None)
Quarter: 2007Q4

REPORT INFORMATION
  Report Type: 
  Country: None (occurrence: None)
  Receive Date: 20071214
  Receipt Date: 20071011
  Transmission Date: 20080405
  Serious: No
  Sender: FDA-Public Use
  Company Number: US-ABBOTT-07P-163-0420944-00

PATIENT
  Sex: Female
  Weight: 61.29 kg

DRUGS (3)
  1. HUMIRA [Suspect]
     Indication: RHEUMATOID ARTHRITIS
     Dosage: PEN
     Route: 058
     Dates: start: 20060101, end: 20070601
  2. HUMIRA [Suspect]
     Dosage: SYRINGE (DOSE CHANGE)
     Route: 058
     Dates: start: 20070601, end: 20070701
  3. HUMIRA [Suspect]
     Dosage: PEN (DOSE CHANGE)
     Route: 058
     Dates: start: 20070701

REACTIONS (4)
  - ANXIETY [None]
  - DRUG INEFFECTIVE [None]
  - MUSCULOSKELETAL STIFFNESS [None]
  - PAIN [None]
